FAERS Safety Report 21727948 (Version 1)
Quarter: 2022Q4

REPORT INFORMATION
  Report Type: Spontaneous
  Country: KR (occurrence: KR)
  Receive Date: 20221214
  Receipt Date: 20221214
  Transmission Date: 20230112
  Serious: Yes (Other)
  Sender: FDA-Public Use
  Company Number: KR-GUERBETG-KR-20220018

PATIENT
  Sex: Female

DRUGS (1)
  1. OPTIRAY [Suspect]
     Active Substance: IOVERSOL
     Indication: Computerised tomogram liver
     Route: 065
     Dates: start: 202201, end: 202201

REACTIONS (7)
  - Aneurysm [Unknown]
  - Hypoaesthesia [Not Recovered/Not Resolved]
  - Eye disorder [Unknown]
  - Oropharyngeal discomfort [Unknown]
  - Hypertension [Recovered/Resolved]
  - Tachycardia [Not Recovered/Not Resolved]
  - Contusion [Unknown]
